FAERS Safety Report 14712436 (Version 3)
Quarter: 2019Q1

REPORT INFORMATION
  Report Type: Report from Study
  Country: US (occurrence: US)
  Receive Date: 20180404
  Receipt Date: 20190205
  Transmission Date: 20190417
  Serious: Yes (Other)
  Sender: FDA-Public Use
  Company Number: US-ROCHE-2095788

PATIENT
  Sex: Male

DRUGS (1)
  1. ESBRIET [Suspect]
     Active Substance: PIRFENIDONE
     Indication: IDIOPATHIC PULMONARY FIBROSIS
     Dosage: ONGOING YES,9 PILLS A DAY
     Route: 065
     Dates: start: 201608

REACTIONS (7)
  - Pancreatitis [Unknown]
  - Escherichia infection [Unknown]
  - Ocular cancer metastatic [Unknown]
  - Hepatomegaly [Unknown]
  - Cholelithiasis [Unknown]
  - Sepsis [Unknown]
  - Bile duct obstruction [Unknown]
